FAERS Safety Report 12851289 (Version 1)
Quarter: 2016Q4

REPORT INFORMATION
  Report Type: Spontaneous
  Country: FI (occurrence: FI)
  Receive Date: 20161015
  Receipt Date: 20161015
  Transmission Date: 20170207
  Serious: Yes (Hospitalization, Other)
  Sender: FDA-Public Use
  Company Number: FI-AMGEN-FINSP2016139251

PATIENT
  Age: 77 Year
  Sex: Male

DRUGS (9)
  1. FELODIPINE. [Concomitant]
     Active Substance: FELODIPINE
  2. ORMOX [Concomitant]
     Dosage: 20 MG/D
     Route: 048
  3. SIMVASTATIN. [Concomitant]
     Active Substance: SIMVASTATIN
     Dosage: 60 MG/D
     Route: 048
  4. XGEVA [Suspect]
     Active Substance: DENOSUMAB
     Indication: PRODUCT USED FOR UNKNOWN INDICATION
     Dosage: UNK
     Route: 058
  5. DIOVAN COMP [Concomitant]
     Active Substance: HYDROCHLOROTHIAZIDE\VALSARTAN
     Dosage: 1 DF/D
     Route: 048
  6. FIRMAGON [Concomitant]
     Active Substance: DEGARELIX ACETATE
     Route: 058
  7. CALCICHEW D3 FORTE [Concomitant]
     Active Substance: CALCIUM\CHOLECALCIFEROL
     Dosage: 6 DF/D
  8. ORLOC [Concomitant]
     Active Substance: BISOPROLOL FUMARATE
     Dosage: 10 MG/D
     Route: 048
  9. ALLONOL [Concomitant]
     Active Substance: ALLOPURINOL
     Dosage: 300 MG/D
     Route: 048

REACTIONS (1)
  - Osteonecrosis of jaw [Not Recovered/Not Resolved]

NARRATIVE: CASE EVENT DATE: 20160603
